FAERS Safety Report 17364563 (Version 16)
Quarter: 2022Q1

REPORT INFORMATION
  Report Type: Other
  Country: IT (occurrence: None)
  Receive Date: 20200204
  Receipt Date: 20220221
  Transmission Date: 20220423
  Serious: Yes (Death, Other)
  Sender: FDA-Public Use
  Company Number: IT-ROCHE-2506084

PATIENT
  Age: 67 Year
  Sex: Male

DRUGS (4)
  1. OBINUTUZUMAB [Suspect]
     Active Substance: OBINUTUZUMAB
     Indication: Follicular lymphoma
     Dosage: INDUCTION PERIOD?1000 MILLIGRAM (MG) INTRAVENOUSLY (IV) ON DAY 1, 8, 15 OF CYCLE 1 AN DAY 1 OF CYCLE
     Route: 042
     Dates: start: 20190916
  2. OBINUTUZUMAB [Suspect]
     Active Substance: OBINUTUZUMAB
     Dosage: MAINTENANCE DOSE (MOST RECENT DOSE DATE PRIOR TO SAE WAS ON 01/FEB/2021)
     Route: 042
     Dates: start: 20200427
  3. BENDAMUSTINE [Suspect]
     Active Substance: BENDAMUSTINE
     Indication: Product used for unknown indication
     Route: 065
  4. LANSOPRAZOLE [Concomitant]
     Active Substance: LANSOPRAZOLE

REACTIONS (9)
  - Neutropenia [Recovered/Resolved]
  - Neutropenia [Recovered/Resolved]
  - COVID-19 [Fatal]
  - Neuropathy peripheral [Recovered/Resolved]
  - Herpes zoster [Recovered/Resolved with Sequelae]
  - Campylobacter infection [Recovered/Resolved]
  - Platelet count decreased [Recovered/Resolved]
  - Platelet count decreased [Recovered/Resolved]
  - Anaemia [Recovered/Resolved]

NARRATIVE: CASE EVENT DATE: 20191107
